FAERS Safety Report 21424415 (Version 3)
Quarter: 2022Q4

REPORT INFORMATION
  Report Type: Spontaneous
  Country: CN (occurrence: CN)
  Receive Date: 20221007
  Receipt Date: 20221018
  Transmission Date: 20230113
  Serious: Yes (Life-Threatening, Hospitalization)
  Sender: FDA-Public Use
  Company Number: CN-MLMSERVICE-20220928-3802883-1

PATIENT
  Age: 62 Year
  Sex: Male
  Weight: 65 kg

DRUGS (2)
  1. DEXAMETHASONE [Suspect]
     Active Substance: DEXAMETHASONE
     Indication: Tooth extraction
     Route: 048
  2. ORNIDAZOLE [Concomitant]
     Active Substance: ORNIDAZOLE
     Indication: Tooth extraction
     Route: 048

REACTIONS (5)
  - Cerebral nocardiosis [Recovered/Resolved]
  - Meningitis bacterial [Recovered/Resolved]
  - Respiratory failure [Recovered/Resolved]
  - Pneumocystis jirovecii pneumonia [Recovered/Resolved]
  - Bronchopulmonary aspergillosis [Recovered/Resolved]
